FAERS Safety Report 4791270-9 (Version None)
Quarter: 2005Q4

REPORT INFORMATION
  Report Type: 
  Country: None (occurrence: None)
  Receive Date: 20051007
  Receipt Date: 20051003
  Transmission Date: 20060501
  Serious: Yes (Hospitalization)
  Sender: FDA-Public Use
  Company Number: PHRM2005FR02622

PATIENT
  Age: 81 Year
  Sex: Female

DRUGS (4)
  1. EBIXA [Suspect]
     Dosage: 2 DF, QD
     Route: 048
     Dates: end: 20050812
  2. DOMPERIDONE [Suspect]
     Route: 048
  3. NEURONTIN [Concomitant]
  4. EXELON [Suspect]
     Dosage: 2 DF, QD
     Route: 048
     Dates: end: 20050812

REACTIONS (4)
  - CEREBRAL ATROPHY [None]
  - CHOREA [None]
  - DYSKINESIA [None]
  - MENTAL DISORDER [None]
